FAERS Safety Report 10803324 (Version 1)
Quarter: 2015Q1

REPORT INFORMATION
  Report Type: Spontaneous
  Country: US (occurrence: US)
  Receive Date: 20150217
  Receipt Date: 20150217
  Transmission Date: 20150721
  Serious: Yes (Hospitalization, Other)
  Sender: FDA-Public Use
  Company Number: US-ASTRAZENECA-2015SE13120

PATIENT
  Sex: Male

DRUGS (23)
  1. LEVOTHYROXINE [Concomitant]
     Active Substance: LEVOTHYROXINE
     Indication: THYROID DISORDER
  2. LYRICA [Concomitant]
     Active Substance: PREGABALIN
     Indication: NEUROPATHY PERIPHERAL
     Dosage: 200 MG: ONE THREE TIMES A DAY
  3. METANX [Concomitant]
     Active Substance: LEVOMEFOLATE CALCIUM\METHYLCOBALAMIN\PYRIDOXAL PHOSPHATE ANHYDROUS
     Indication: TUBULISATION NERVE REPAIR
  4. FOLIC ACID. [Concomitant]
     Active Substance: FOLIC ACID
  5. B6 [Concomitant]
     Active Substance: PYRIDOXINE HYDROCHLORIDE
  6. PROPRANOLOL [Concomitant]
     Active Substance: PROPRANOLOL\PROPRANOLOL HYDROCHLORIDE
     Indication: HYPERTENSION
  7. COLACE [Concomitant]
     Active Substance: DOCUSATE SODIUM
     Indication: FAECES SOFT
  8. CYMBALTA [Concomitant]
     Active Substance: DULOXETINE HYDROCHLORIDE
     Indication: AFFECTIVE DISORDER
  9. CLALLS [Concomitant]
  10. SPIRONOLACTONE. [Concomitant]
     Active Substance: SPIRONOLACTONE
     Indication: FLUID RETENTION
  11. CYMBALTA [Concomitant]
     Active Substance: DULOXETINE HYDROCHLORIDE
     Indication: PAIN
  12. MILK THISTLE [Concomitant]
     Active Substance: MILK THISTLE
     Indication: HEPATIC FUNCTION ABNORMAL
  13. OMEPRAZOLE. [Suspect]
     Active Substance: OMEPRAZOLE
     Indication: GASTROOESOPHAGEAL REFLUX DISEASE
     Route: 048
  14. FERROUS SULFATE [Concomitant]
     Active Substance: FERROUS SULFATE\FERROUS SULFATE, DRIED
     Indication: MINERAL SUPPLEMENTATION
  15. FLUDROCORTIZONE [Concomitant]
     Indication: TOXIC NODULAR GOITRE
  16. PYRIDOSTIGMINE [Concomitant]
     Active Substance: PYRIDOSTIGMINE
  17. TEMAZEPAM. [Concomitant]
     Active Substance: TEMAZEPAM
     Indication: SLEEP DISORDER
  18. MIDODRINE [Concomitant]
     Active Substance: MIDODRINE
     Dosage: 5 MG: 9 AM, NOON, 3:00
  19. OXYCODONE [Concomitant]
     Active Substance: OXYCODONE
     Dosage: 5 MG; EVERY 6 HOURS AS NEEDED
  20. MAGNESIUM [Concomitant]
     Active Substance: MAGNESIUM
  21. ZESTRIL [Suspect]
     Active Substance: LISINOPRIL
     Route: 048
  22. MULTIVITAMIN [Concomitant]
     Active Substance: VITAMINS
  23. METANX [Concomitant]
     Active Substance: LEVOMEFOLATE CALCIUM\METHYLCOBALAMIN\PYRIDOXAL PHOSPHATE ANHYDROUS
     Indication: PAIN

REACTIONS (20)
  - Fall [Unknown]
  - Lower limb fracture [Unknown]
  - Ankle fracture [Unknown]
  - Decubitus ulcer [Unknown]
  - Ill-defined disorder [Unknown]
  - Sleep disorder [Unknown]
  - Neuropathy peripheral [Unknown]
  - Varices oesophageal [Unknown]
  - Hepatic cirrhosis [Unknown]
  - Depression [Unknown]
  - Anaemia [Unknown]
  - Nephrolithiasis [Unknown]
  - Immunodeficiency [Unknown]
  - Splenomegaly [Unknown]
  - Compression fracture [Unknown]
  - Psoriasis [Unknown]
  - Drug dose omission [Unknown]
  - Wrist fracture [Unknown]
  - Cellulitis staphylococcal [Unknown]
  - Osteomyelitis [Unknown]
